FAERS Safety Report 9129494 (Version 3)
Quarter: 2013Q1

REPORT INFORMATION
  Report Type: Report from Study
  Country: KR (occurrence: KR)
  Receive Date: 20130228
  Receipt Date: 20130307
  Transmission Date: 20140127
  Serious: Yes (Death)
  Sender: FDA-Public Use
  Company Number: KR-GLAXOSMITHKLINE-B0870241A

PATIENT
  Age: 57 Year
  Sex: Male
  Weight: 53.4 kg

DRUGS (5)
  1. VOTRIENT [Suspect]
     Indication: RENAL CELL CARCINOMA
     Dosage: 600MG PER DAY
     Route: 048
     Dates: start: 20120109, end: 20130213
  2. COZAAR [Concomitant]
     Indication: HYPERTENSION
     Dosage: 50MG PER DAY
     Route: 048
     Dates: start: 20130211, end: 20130215
  3. VERAPAMIL HCL [Concomitant]
     Indication: HYPERTENSION
     Dosage: 240MG PER DAY
     Route: 048
     Dates: start: 20130211, end: 20130215
  4. MOLSIDOMINE [Concomitant]
     Indication: HYPERTENSION
     Dosage: 2MG PER DAY
     Route: 048
     Dates: start: 20130211, end: 20130215
  5. RAPAMUNE [Concomitant]
     Indication: RENAL TRANSPLANT
     Dosage: 2MG PER DAY
     Route: 048
     Dates: start: 20130211, end: 20130214

REACTIONS (1)
  - Pneumonia [Fatal]
